FAERS Safety Report 8546723-4 (Version None)
Quarter: 2012Q3

REPORT INFORMATION
  Report Type: 
  Country: None (occurrence: None)
  Receive Date: 20120727
  Receipt Date: 20120131
  Transmission Date: 20120928
  Serious: No
  Sender: FDA-Public Use
  Company Number: US-ASTRAZENECA-2012SE06666

PATIENT
  Age: 53 Year
  Sex: Male
  Weight: 122.5 kg

DRUGS (14)
  1. ZOLOFT [Concomitant]
  2. SEROQUEL XR [Suspect]
     Route: 048
  3. LISINOPRIL [Concomitant]
  4. GEMFIBROZIL [Concomitant]
  5. KLOR-CON [Concomitant]
  6. TRAMADOL HYDROCHLORIDE [Concomitant]
  7. TEMAZEPAM [Concomitant]
  8. ALPRAZOLAM [Concomitant]
  9. TRIAMTERENE [Concomitant]
  10. SIMVASTATIN [Concomitant]
  11. HYDROCODONE BITARTRATE [Concomitant]
  12. FUROSEMIDE [Concomitant]
  13. ZERTALIN [Concomitant]
  14. GABAPENTIN [Concomitant]

REACTIONS (2)
  - MALAISE [None]
  - DRUG DOSE OMISSION [None]
